FAERS Safety Report 6383691-8 (Version None)
Quarter: 2009Q4

REPORT INFORMATION
  Report Type: 
  Country: None (occurrence: None)
  Receive Date: 20091001
  Receipt Date: 20090925
  Transmission Date: 20100525
  Serious: Yes (Life-Threatening)
  Sender: FDA-Public Use
  Company Number: JP-ASTRAZENECA-2009SE06724

PATIENT
  Age: 7923 Day
  Sex: Male

DRUGS (2)
  1. MEROPEN [Suspect]
     Route: 042
     Dates: start: 20061206, end: 20061208
  2. ADEFURONIC [Suspect]
     Indication: ANTIPYRESIS
     Route: 048
     Dates: start: 20061202, end: 20061207

REACTIONS (1)
  - STEVENS-JOHNSON SYNDROME [None]
